FAERS Safety Report 5902567-0 (Version None)
Quarter: 2008Q3

REPORT INFORMATION
  Report Type: 
  Country: None (occurrence: None)
  Receive Date: 20080925
  Receipt Date: 20080918
  Transmission Date: 20090109
  Serious: Yes (Other)
  Sender: FDA-Public Use
  Company Number: 2008AL010636

PATIENT
  Age: 71 Year
  Sex: Male
  Weight: 90.7194 kg

DRUGS (1)
  1. DIGOXIN [Suspect]
     Indication: CARDIAC FAILURE CONGESTIVE
     Dosage: DAILY, PO
     Route: 048

REACTIONS (4)
  - DRUG LEVEL INCREASED [None]
  - HYPOTENSION [None]
  - MUSCLE SPASMS [None]
  - PARAESTHESIA [None]
